FAERS Safety Report 16351378 (Version 1)
Quarter: 2019Q2

REPORT INFORMATION
  Report Type: Spontaneous
  Country: US (occurrence: US)
  Receive Date: 20190524
  Receipt Date: 20190524
  Transmission Date: 20190711
  Serious: Yes (Hospitalization, Other)
  Sender: FDA-Public Use
  Company Number: US-ACCORD-128914

PATIENT
  Age: 29 Year
  Sex: Male

DRUGS (3)
  1. MERCAPTOPURINE/MERCAPTOPURINE ANHYDROUS [Suspect]
     Active Substance: MERCAPTOPURINE
     Indication: IMMUNOSUPPRESSANT DRUG THERAPY
     Route: 048
  2. METHOTREXATE. [Suspect]
     Active Substance: METHOTREXATE
     Indication: T-CELL TYPE ACUTE LEUKAEMIA
     Dosage: MAINTENANCE PHASE OF CHEMOTHERAPY
     Route: 048
  3. NELARABINE [Concomitant]
     Active Substance: NELARABINE
     Indication: T-CELL TYPE ACUTE LEUKAEMIA
     Dosage: MAINTENANCE PHASE OF CHEMOTHERAPY
     Route: 048

REACTIONS (3)
  - Epstein Barr virus positive mucocutaneous ulcer [Recovered/Resolved]
  - Epstein-Barr virus associated lymphoproliferative disorder [Recovered/Resolved]
  - Tonsillar ulcer [Recovered/Resolved]
